FAERS Safety Report 18214312 (Version 1)
Quarter: 2020Q3

REPORT INFORMATION
  Report Type: Other
  Country: None (occurrence: CZ)
  Receive Date: 20200831
  Receipt Date: 20200831
  Transmission Date: 20201103
  Serious: Yes (Hospitalization)
  Sender: FDA-Public Use
  Company Number: CZ-B.BRAUN MEDICAL INC.-2089230

PATIENT
  Age: 79 Year
  Sex: Female

DRUGS (3)
  1. CEFUROXIME FOR INJECTION USP AND DEXTROSE INJECTION USP [Suspect]
     Active Substance: CEFUROXIME SODIUM
     Route: 048
  2. PERINDOPRIL ERBUMINE. [Concomitant]
     Active Substance: PERINDOPRIL ERBUMINE
  3. INDAPAMIDE. [Concomitant]
     Active Substance: INDAPAMIDE

REACTIONS (1)
  - Pancreatitis [Recovered/Resolved]
